FAERS Safety Report 17928212 (Version 1)
Quarter: 2020Q2

REPORT INFORMATION
  Report Type: Spontaneous
  Country: FR (occurrence: FR)
  Receive Date: 20200623
  Receipt Date: 20200623
  Transmission Date: 20200714
  Serious: Yes (Death, Hospitalization, Other)
  Sender: FDA-Public Use
  Company Number: FR-JAZZ-2020-FR-007954

PATIENT

DRUGS (4)
  1. DAUNORUBICINE [Suspect]
     Active Substance: DAUNORUBICIN
     Indication: ACUTE LYMPHOCYTIC LEUKAEMIA
     Dosage: 82.5 MICROGRAM
     Route: 042
     Dates: start: 20200513, end: 20200515
  2. ASPARAGINASE [Suspect]
     Active Substance: ASPARAGINASE
     Indication: ACUTE LYMPHOCYTIC LEUKAEMIA
     Dosage: 2 MICROGRAM
     Route: 042
     Dates: start: 20200520, end: 20200524
  3. VINCRISTINE [Suspect]
     Active Substance: VINCRISTINE
     Indication: ACUTE LYMPHOCYTIC LEUKAEMIA
     Dosage: 2 MICROGRAM
     Route: 042
     Dates: start: 20200513, end: 20200520
  4. ENDOXAN [CYCLOPHOSPHAMIDE MONOHYDRATE] [Suspect]
     Active Substance: CYCLOPHOSPHAMIDE
     Indication: ACUTE LYMPHOCYTIC LEUKAEMIA
     Dosage: 1220 MICROGRAM
     Route: 042
     Dates: start: 20200513, end: 20200513

REACTIONS (6)
  - Cor pulmonale acute [Fatal]
  - Prothrombin time shortened [Fatal]
  - Febrile bone marrow aplasia [Fatal]
  - Ventricular dysfunction [Fatal]
  - Hypoalbuminaemia [Fatal]
  - Cardiac arrest [Fatal]

NARRATIVE: CASE EVENT DATE: 20200520
